FAERS Safety Report 10724900 (Version 1)
Quarter: 2015Q1

REPORT INFORMATION
  Report Type: Spontaneous
  Country: US (occurrence: US)
  Receive Date: 20150120
  Receipt Date: 20150120
  Transmission Date: 20150721
  Serious: No
  Sender: FDA-Public Use
  Company Number: US-GLAXOSMITHKLINE-US2014GSK047539

PATIENT
  Sex: Female

DRUGS (2)
  1. VOTRIENT [Suspect]
     Active Substance: PAZOPANIB HYDROCHLORIDE
     Dosage: 800 MG, QD
     Dates: start: 20141101
  2. VOTRIENT [Suspect]
     Active Substance: PAZOPANIB HYDROCHLORIDE
     Indication: METASTASES TO BONE
     Dosage: 800 MG, QD
     Dates: end: 201405

REACTIONS (5)
  - Eyelid oedema [Unknown]
  - Vaginal haemorrhage [Unknown]
  - Epistaxis [Unknown]
  - Diarrhoea [Unknown]
  - Eyelid pain [Unknown]

NARRATIVE: CASE EVENT DATE: 2014
